FAERS Safety Report 5509842-2 (Version None)
Quarter: 2007Q4

REPORT INFORMATION
  Report Type: 
  Country: None (occurrence: None)
  Receive Date: 20071029
  Receipt Date: 20070821
  Transmission Date: 20080405
  Serious: Yes (Hospitalization)
  Sender: FDA-Public Use
  Company Number: 013027

PATIENT
  Age: 67 Year
  Sex: Female

DRUGS (6)
  1. PRIALT [Suspect]
     Indication: NEURALGIA
     Dosage: 0.09; 0.15; 0.13; 0.14 UG, ONCE/HOUR, INTRATHECAL
     Route: 037
     Dates: start: 20070620, end: 20070625
  2. PRIALT [Suspect]
     Indication: NEURALGIA
     Dosage: 0.09; 0.15; 0.13; 0.14 UG, ONCE/HOUR, INTRATHECAL
     Route: 037
     Dates: start: 20070625, end: 20070629
  3. PRIALT [Suspect]
     Indication: NEURALGIA
     Dosage: 0.09; 0.15; 0.13; 0.14 UG, ONCE/HOUR, INTRATHECAL
     Route: 037
     Dates: start: 20070629, end: 20070801
  4. ZANAFLEX [Concomitant]
  5. LORAZEPAM [Concomitant]
  6. NEURONTIN [Concomitant]

REACTIONS (8)
  - DISTRACTIBILITY [None]
  - FALL [None]
  - IRRITABILITY [None]
  - MEMORY IMPAIRMENT [None]
  - MYALGIA [None]
  - NEURALGIA [None]
  - PAIN [None]
  - PSYCHOTIC DISORDER [None]
